FAERS Safety Report 18088681 (Version 4)
Quarter: 2020Q4

REPORT INFORMATION
  Report Type: Spontaneous
  Country: US (occurrence: US)
  Receive Date: 20200729
  Receipt Date: 20201112
  Transmission Date: 20210113
  Serious: No
  Sender: FDA-Public Use
  Company Number: US-PFIZER INC-2020288185

PATIENT
  Age: 63 Year
  Sex: Female
  Weight: 68.93 kg

DRUGS (5)
  1. TAXOTERE [Suspect]
     Active Substance: DOCETAXEL
     Dosage: UNK
  2. DOCETAXEL. [Suspect]
     Active Substance: DOCETAXEL
     Dosage: UNK
  3. HYZAAR [Concomitant]
     Active Substance: HYDROCHLOROTHIAZIDE\LOSARTAN POTASSIUM
     Dosage: UNK, 100 - 25 MG, 1X/DAY
     Route: 048
     Dates: start: 20150211, end: 20150713
  4. TOPROL XL [Concomitant]
     Active Substance: METOPROLOL SUCCINATE
     Dosage: 100 MG, 1X/DAY
     Route: 048
     Dates: start: 20150211, end: 20150713
  5. LOPRESSOR [Concomitant]
     Active Substance: METOPROLOL TARTRATE
     Dosage: 50 MG, 2X/DAY
     Route: 048
     Dates: start: 20150211, end: 20150331

REACTIONS (3)
  - Eye injury [Unknown]
  - Dacryostenosis acquired [Unknown]
  - Lacrimation increased [Unknown]
